FAERS Safety Report 19406581 (Version 2)
Quarter: 2021Q4

REPORT INFORMATION
  Report Type: Report from Study
  Country: DE (occurrence: None)
  Receive Date: 20210611
  Receipt Date: 20211213
  Transmission Date: 20220303
  Serious: Yes (Other)
  Sender: FDA-Public Use
  Company Number: DE-ROCHE-2843279

PATIENT
  Age: 72 Year
  Sex: Female
  Weight: 44 kg

DRUGS (6)
  1. OBINUTUZUMAB [Suspect]
     Active Substance: OBINUTUZUMAB
     Indication: Malignant lymphoid neoplasm
     Dosage: LAST DOSE ADMINISTERED ON 22/AUG/2020
     Route: 042
     Dates: start: 20200513
  2. ACALABRUTINIB [Suspect]
     Active Substance: ACALABRUTINIB
     Indication: Malignant lymphoid neoplasm
     Dosage: LAST DOSE ADMINISTERED ON 12/NOV/2020
     Route: 065
     Dates: start: 20200610
  3. VENETOCLAX [Suspect]
     Active Substance: VENETOCLAX
     Indication: Malignant lymphoid neoplasm
     Dosage: LAST DOSE ADMINISTERED ON 20/OCT/2020
     Route: 065
     Dates: start: 20200716
  4. LEVOTHYROXINE [Concomitant]
     Active Substance: LEVOTHYROXINE
     Route: 048
     Dates: start: 1987
  5. NEBIVOLOL [Concomitant]
     Active Substance: NEBIVOLOL
     Route: 048
     Dates: start: 201501
  6. MAGNESIUM [Concomitant]
     Active Substance: MAGNESIUM
     Route: 048
     Dates: start: 201805

REACTIONS (1)
  - Groin abscess [Recovered/Resolved]

NARRATIVE: CASE EVENT DATE: 20210520
